FAERS Safety Report 7585526-4 (Version None)
Quarter: 2011Q2

REPORT INFORMATION
  Report Type: 
  Country: None (occurrence: None)
  Receive Date: 20110531
  Receipt Date: 20100624
  Transmission Date: 20111010
  Serious: Yes (Hospitalization)
  Sender: FDA-Public Use
  Company Number: WAES 1006USA03965

PATIENT
  Age: 56 Year
  Sex: Female
  Weight: 86.637 kg

DRUGS (1)
  1. JANUMET [Suspect]
     Indication: DIABETES MELLITUS
     Dosage: 1000MG/50 MG/BID/PO
     Route: 048
     Dates: start: 20090317, end: 20100726

REACTIONS (1)
  - PANCREATITIS ACUTE [None]
